FAERS Safety Report 9472714 (Version 1)
Quarter: 2013Q3

REPORT INFORMATION
  Report Type: Report from Study
  Country: US (occurrence: US)
  Receive Date: 20130823
  Receipt Date: 20130823
  Transmission Date: 20140515
  Serious: Yes (Hospitalization, Other)
  Sender: FDA-Public Use
  Company Number: US-ABBOTT-13P-163-1134558-00

PATIENT
  Age: 37 Year
  Sex: Female
  Weight: 81.72 kg

DRUGS (9)
  1. NIASPAN (COATED) [Suspect]
     Indication: LOW DENSITY LIPOPROTEIN
     Dates: start: 2008, end: 2009
  2. NIASPAN (COATED) [Suspect]
     Indication: BLOOD TRIGLYCERIDES
  3. NIASPAN (COATED) [Suspect]
     Indication: BLOOD CHOLESTEROL INCREASED
  4. FISH OIL [Concomitant]
     Indication: PRODUCT USED FOR UNKNOWN INDICATION
  5. VITAMIN C [Concomitant]
     Indication: PRODUCT USED FOR UNKNOWN INDICATION
  6. VITAMIN B [Concomitant]
     Indication: PRODUCT USED FOR UNKNOWN INDICATION
  7. VITAMIN D [Concomitant]
     Indication: PRODUCT USED FOR UNKNOWN INDICATION
  8. UNSPECIFIED BLOOD PRESSURE MEDICATION [Concomitant]
     Indication: BLOOD PRESSURE
  9. UNSPECIFIED BLOOD PRESSURE MEDICATION [Concomitant]
     Indication: BLOOD PRESSURE

REACTIONS (10)
  - Fall [Recovering/Resolving]
  - Blood glucose decreased [Recovering/Resolving]
  - Head injury [Recovering/Resolving]
  - Compression fracture [Recovering/Resolving]
  - Respiratory disorder [Recovered/Resolved]
  - Oxygen saturation decreased [Recovered/Resolved]
  - Flushing [Recovered/Resolved]
  - Ammonia increased [Recovering/Resolving]
  - Urinary tract infection [Recovered/Resolved]
  - Osteoporosis [Unknown]
